FAERS Safety Report 15204657 (Version 1)
Quarter: 2018Q3

REPORT INFORMATION
  Report Type: Spontaneous
  Country: US (occurrence: US)
  Receive Date: 20180628
  Receipt Date: 20180628
  Transmission Date: 20181010
  Serious: Yes (Hospitalization)
  Sender: FDA-Public Use
  Company Number: None

PATIENT
  Age: 17 Year
  Sex: Male

DRUGS (1)
  1. MEKINIST [Suspect]
     Active Substance: TRAMETINIB DIMETHYL SULFOXIDE
     Dates: start: 20180326, end: 20180613

REACTIONS (5)
  - Dyspnoea [None]
  - Pyrexia [None]
  - Pneumonia [None]
  - Eating disorder [None]
  - Disease complication [None]

NARRATIVE: CASE EVENT DATE: 20180613
